FAERS Safety Report 5189757-2 (Version None)
Quarter: 2006Q4

REPORT INFORMATION
  Report Type: 
  Country: None (occurrence: None)
  Receive Date: 20061218
  Receipt Date: 20061201
  Transmission Date: 20070319
  Serious: Yes (Other)
  Sender: FDA-Public Use
  Company Number: US-2006-037627

PATIENT
  Age: 48 Year
  Sex: Female

DRUGS (2)
  1. BETASERON [Suspect]
     Indication: MULTIPLE SCLEROSIS
     Dosage: 8 MIU,EVERY 2D, SUBCUTANEOUS
     Route: 058
     Dates: start: 20031113
  2. LEVOTHYROXINE SODIUM [Concomitant]

REACTIONS (3)
  - HYPOTHALAMO-PITUITARY DISORDERS [None]
  - POLYP [None]
  - THYROID DISORDER [None]
